FAERS Safety Report 19351692 (Version 1)
Quarter: 2021Q2

REPORT INFORMATION
  Report Type: Spontaneous
  Country: US (occurrence: US)
  Receive Date: 20210531
  Receipt Date: 20210531
  Transmission Date: 20210717
  Serious: Yes (Hospitalization)
  Sender: FDA-Public Use
  Company Number: US-MICRO LABS LIMITED-ML2021-01639

PATIENT
  Age: 43 Year
  Sex: Female

DRUGS (7)
  1. NALOXONE [Concomitant]
     Active Substance: NALOXONE
     Dosage: 5 ADDITIONAL CARTRIDGES
     Route: 045
  2. BUPRENORPHINE. [Suspect]
     Active Substance: BUPRENORPHINE
     Indication: AGITATION
     Route: 042
  3. HALOPERIDOL. [Suspect]
     Active Substance: HALOPERIDOL
     Indication: AGITATION
  4. NALOXONE [Concomitant]
     Active Substance: NALOXONE
     Indication: AGITATION
     Route: 045
  5. PROPOFOL. [Concomitant]
     Active Substance: PROPOFOL
     Indication: AGITATION
  6. DIPHENHYDRAMINE HYDROCHLORIDE. [Suspect]
     Active Substance: DIPHENHYDRAMINE HYDROCHLORIDE
     Indication: AGITATION
  7. LORAZEPAM. [Suspect]
     Active Substance: LORAZEPAM
     Indication: AGITATION

REACTIONS (1)
  - Drug ineffective [Unknown]
